FAERS Safety Report 6290930-0 (Version None)
Quarter: 2009Q3

REPORT INFORMATION
  Report Type: 
  Country: None (occurrence: None)
  Receive Date: 20090729
  Receipt Date: 20090729
  Transmission Date: 20100115
  Serious: Yes (Other)
  Sender: FDA-Public Use
  Company Number: None

PATIENT
  Age: 37 Year
  Sex: Female
  Weight: 81.1939 kg

DRUGS (1)
  1. NUVARING [Suspect]
     Indication: CONTRACEPTION
     Dosage: ONCE EVERY 4 WEEKS VAG
     Route: 067
     Dates: start: 20050101, end: 20090725

REACTIONS (7)
  - ABNORMAL SENSATION IN EYE [None]
  - ALOPECIA [None]
  - DIZZINESS [None]
  - HEADACHE [None]
  - LOSS OF LIBIDO [None]
  - SENSORY DISTURBANCE [None]
  - VISION BLURRED [None]
